FAERS Safety Report 23772713 (Version 3)
Quarter: 2024Q2

REPORT INFORMATION
  Report Type: Spontaneous
  Country: US (occurrence: US)
  Receive Date: 20240423
  Receipt Date: 20240515
  Transmission Date: 20240716
  Serious: Yes (Hospitalization, Other)
  Sender: FDA-Public Use
  Company Number: US-BIOVITRUM-2024-US-006131

PATIENT
  Age: 77 Year
  Sex: Male

DRUGS (2)
  1. VONJO [Suspect]
     Active Substance: PACRITINIB
     Indication: Hyperlipidaemia
     Dosage: TWICE DAILY
     Route: 048
     Dates: start: 20240408
  2. VONJO [Suspect]
     Active Substance: PACRITINIB
     Indication: Polycythaemia vera

REACTIONS (12)
  - Platelet count decreased [Unknown]
  - Squamous cell carcinoma of head and neck [Unknown]
  - Off label use [Not Recovered/Not Resolved]
  - Nausea [Unknown]
  - Diarrhoea [Unknown]
  - Product use complaint [Unknown]
  - Fatigue [Unknown]
  - Abdominal rigidity [Unknown]
  - Faeces soft [Unknown]
  - Fall [Unknown]
  - Product dose omission issue [Unknown]
  - Head injury [Unknown]

NARRATIVE: CASE EVENT DATE: 20240408
